FAERS Safety Report 4506664-6 (Version None)
Quarter: 2004Q4

REPORT INFORMATION
  Report Type: 
  Country: None (occurrence: None)
  Receive Date: 20041117
  Receipt Date: 20041109
  Transmission Date: 20050328
  Serious: Yes (Hospitalization)
  Sender: FDA-Public Use
  Company Number: TPA2004A01382

PATIENT
  Age: 55 Year
  Sex: Male
  Weight: 99.7913 kg

DRUGS (11)
  1. ACTOS [Suspect]
     Indication: DIABETES MELLITUS NON-INSULIN-DEPENDENT
     Dosage: 45 MG, 1-2 IN 1 D, PER ORAL
     Route: 048
     Dates: start: 20041009, end: 20041108
  2. ACTOS [Suspect]
     Indication: DIABETES MELLITUS NON-INSULIN-DEPENDENT
     Dosage: 45 MG, 1-2 IN 1 D, PER ORAL
     Route: 048
     Dates: start: 20041108, end: 20041108
  3. ACTOS [Suspect]
     Indication: DIABETES MELLITUS NON-INSULIN-DEPENDENT
     Dosage: 45 MG, 1-2 IN 1 D, PER ORAL
     Route: 048
     Dates: start: 20041108
  4. IMITREX [Concomitant]
  5. ALTACE (RAMIPRIL) (2.5 MILLIGRAM) [Concomitant]
  6. MAG-OX (MAGNESIUM OXIDE) (400 MILLIGRAM) [Concomitant]
  7. ASPIRIN (ACETYLSALICYLIC ACID) (325 MILLIGRAM, TABLETS) [Concomitant]
  8. PROTONIX (PANTOPRAZOLE) (40 MILLIGRAM) [Concomitant]
  9. LEXAPRO (ESCITALOPRAM OXALATE) (10 MILLIGRAM) [Concomitant]
  10. LIPITOR (ATORVASTATIN) (20 MILLIGRAM) [Concomitant]
  11. BEXTRA (VALDECOXIB) (10 MILLIGRAM) [Concomitant]

REACTIONS (7)
  - BLOOD GLUCOSE INCREASED [None]
  - CHEST PAIN [None]
  - DRUG INEFFECTIVE [None]
  - DYSPNOEA [None]
  - HYPERHIDROSIS [None]
  - NERVE COMPRESSION [None]
  - VISUAL ACUITY REDUCED [None]
